FAERS Safety Report 6762321-7 (Version None)
Quarter: 2010Q2

REPORT INFORMATION
  Report Type: 
  Country: None (occurrence: None)
  Receive Date: 20100527
  Receipt Date: 20100503
  Transmission Date: 20101027
  Serious: Yes (Other)
  Sender: FDA-Public Use
  Company Number: WSDF_00628

PATIENT
  Sex: Female
  Weight: 72.8 kg

DRUGS (9)
  1. WINRHO [Suspect]
     Indication: IDIOPATHIC THROMBOCYTOPENIC PURPURA
     Dosage: SEE IMAGE
     Route: 042
     Dates: start: 20061228, end: 20061228
  2. WINRHO [Suspect]
  3. WINRHO [Suspect]
  4. ATOMOXETINE HCL [Concomitant]
  5. VITAMIN C [Concomitant]
  6. PRAVASTATIN [Concomitant]
  7. WELLBUTRIN [Concomitant]
  8. CALTRATE [Concomitant]
  9. TOPAMAX [Concomitant]

REACTIONS (8)
  - ASTHENIA [None]
  - BACK PAIN [None]
  - BLOOD PRESSURE DECREASED [None]
  - FLANK PAIN [None]
  - HAEMOGLOBIN DECREASED [None]
  - HAEMOLYSIS [None]
  - MALAISE [None]
  - OVERDOSE [None]
